FAERS Safety Report 5794987-2 (Version None)
Quarter: 2008Q2

REPORT INFORMATION
  Report Type: 
  Country: None (occurrence: None)
  Receive Date: 20080630
  Receipt Date: 20080417
  Transmission Date: 20081010
  Serious: No
  Sender: FDA-Public Use
  Company Number: US-BRISTOL-MYERS SQUIBB COMPANY-13988241

PATIENT
  Age: 57 Year
  Sex: Female
  Weight: 97 kg

DRUGS (16)
  1. ORENCIA [Suspect]
     Indication: RHEUMATOID ARTHRITIS
     Dosage: 1 DF= 3 VIALS,INCREASED TO 4 VIALS FOR THE PAST 3 MONTHS THERAPY DURATION:1.5 YEARS
     Route: 042
     Dates: start: 20070405
  2. ATENOLOL [Concomitant]
  3. NEXIUM [Concomitant]
  4. DIOVAN [Concomitant]
  5. PAXIL [Concomitant]
  6. LIPITOR [Concomitant]
  7. METHOTREXATE [Concomitant]
  8. MOBIC [Concomitant]
  9. NEURONTIN [Concomitant]
  10. KLONOPIN [Concomitant]
  11. FOLIC ACID [Concomitant]
  12. MAGNESIUM [Concomitant]
  13. ASPIRIN [Concomitant]
  14. ASCORBIC ACID [Concomitant]
  15. VITAMIN E [Concomitant]
  16. CALCIUM + VITAMIN D [Concomitant]

REACTIONS (2)
  - AMNESIA [None]
  - PARANASAL SINUS HYPERSECRETION [None]
